FAERS Safety Report 9012105 (Version 2)
Quarter: 2013Q1

REPORT INFORMATION
  Report Type: Report from Study
  Country: BE (occurrence: BE)
  Receive Date: 20130114
  Receipt Date: 20130311
  Transmission Date: 20140127
  Serious: Yes (Life-Threatening, Hospitalization)
  Sender: FDA-Public Use
  Company Number: BE-ROCHE-1178074

PATIENT
  Age: 86 Year
  Sex: Female

DRUGS (3)
  1. AVASTIN [Suspect]
     Indication: OVARIAN CANCER
     Route: 042
     Dates: start: 20121106, end: 20121218
  2. LOSARTAN [Concomitant]
     Indication: HYPERTENSION
     Route: 048
     Dates: start: 201211
  3. MOXONIDINE [Concomitant]
     Indication: HYPERTENSION
     Dosage: 15MG/KG
     Route: 048
     Dates: start: 201211

REACTIONS (2)
  - Hypertension [Recovered/Resolved]
  - Pulmonary embolism [Not Recovered/Not Resolved]
